FAERS Safety Report 9161199 (Version 1)
Quarter: 2013Q1

REPORT INFORMATION
  Report Type: Spontaneous
  Country: US (occurrence: US)
  Receive Date: 20130313
  Receipt Date: 20130313
  Transmission Date: 20140127
  Serious: Yes (Hospitalization)
  Sender: FDA-Public Use
  Company Number: US-GLAXOSMITHKLINE-A1015137A

PATIENT
  Age: 35 Year
  Sex: Female

DRUGS (3)
  1. BUPROPION HYDROCHLORIDE [Suspect]
     Indication: DEPRESSION
     Dosage: 150MG TWICE PER DAY
     Route: 048
     Dates: start: 2009, end: 20111108
  2. ADVAIR [Concomitant]
  3. ALBUTEROL [Concomitant]

REACTIONS (5)
  - Convulsion [Recovered/Resolved]
  - Road traffic accident [Unknown]
  - Decreased appetite [Unknown]
  - Depressed mood [Unknown]
  - Weight decreased [Unknown]
